FAERS Safety Report 5262731-3 (Version None)
Quarter: 2007Q1

REPORT INFORMATION
  Report Type: 
  Country: None (occurrence: None)
  Receive Date: 20070308
  Receipt Date: 20070222
  Transmission Date: 20070707
  Serious: Yes (Hospitalization)
  Sender: FDA-Public Use
  Company Number: 236762

PATIENT
  Age: 67 Year
  Sex: Female

DRUGS (17)
  1. XOLAIR [Suspect]
     Indication: ASTHMA
     Dosage: 300 MG, 1/MONTH, SUBCUTANEOUS
     Route: 058
     Dates: start: 20061221, end: 20061221
  2. ANTIIBIOTICS (NOT SPECIFIED) (ANTIBIOTICS NOS) [Concomitant]
  3. MEDROL (METHYLPREDNISOLONOE) [Concomitant]
  4. KETEK [Concomitant]
  5. DAFLON (FRANCE) (BIOFLAVONOIDS, DIOSMIN, HESPERIDIN) [Concomitant]
  6. LOSARTAN POTASSIUM [Concomitant]
  7. HYDROCORTISONE [Concomitant]
  8. DILTIAZEM HYDROCHLORIDE [Concomitant]
  9. SINGULAIR [Concomitant]
  10. ALDACTONE [Concomitant]
  11. THEOPHYLLINE [Concomitant]
  12. CALCIUM (CALCIUM NOS) [Concomitant]
  13. CARDIOASPIRINE (ASPIRIN) [Concomitant]
  14. MIXTARD (INSULIN, INSULIN (SUSPENSION), ISOPHANE) [Concomitant]
  15. ACTRAPID (INSULIN) [Concomitant]
  16. DUOVENT (FENOTEROL, IPRATROPIUM BROMIDE) [Concomitant]
  17. CATAFLAM [Concomitant]

REACTIONS (2)
  - OEDEMA [None]
  - TENOSYNOVITIS [None]
